FAERS Safety Report 15112514 (Version 1)
Quarter: 2018Q3

REPORT INFORMATION
  Report Type: Spontaneous
  Country: US (occurrence: US)
  Receive Date: 20180705
  Receipt Date: 20180705
  Transmission Date: 20181010
  Serious: No
  Sender: FDA-Public Use
  Company Number: US-SUNOVION-2018SUN002576

PATIENT
  Sex: Female

DRUGS (2)
  1. PROZAC [Concomitant]
     Active Substance: FLUOXETINE HYDROCHLORIDE
     Dosage: UNKNOWN
     Route: 065
  2. LATUDA [Suspect]
     Active Substance: LURASIDONE HYDROCHLORIDE
     Dosage: UNK
     Route: 048

REACTIONS (8)
  - Myalgia [Unknown]
  - Restlessness [Unknown]
  - Nightmare [Unknown]
  - Sleep talking [Unknown]
  - Anxiety [Unknown]
  - Muscle tightness [Unknown]
  - Restless legs syndrome [Unknown]
  - Insomnia [Unknown]
